FAERS Safety Report 4313450-9 (Version None)
Quarter: 2004Q1

REPORT INFORMATION
  Report Type: 
  Country: None (occurrence: None)
  Receive Date: 20040305
  Receipt Date: 20040305
  Transmission Date: 20041129
  Serious: Yes (Other)
  Sender: FDA-Public Use
  Company Number: None

PATIENT
  Age: 48 Year
  Sex: Male
  Weight: 98.9749 kg

DRUGS (8)
  1. POTASSIUM TABLETS -GENEVA BRAND 10 MG TABLET [Suspect]
     Indication: HYPOKALAEMIA
     Dosage: 20 MG PO TID
     Route: 048
     Dates: start: 20040227
  2. LASIX [Concomitant]
  3. ASPIRIN [Concomitant]
  4. SERZONE [Concomitant]
  5. ALDACTONE [Concomitant]
  6. LIPITOR [Concomitant]
  7. LANTUS [Concomitant]
  8. HUMALOG [Concomitant]

REACTIONS (2)
  - ABDOMINAL DISCOMFORT [None]
  - PHARMACEUTICAL PRODUCT COMPLAINT [None]
